FAERS Safety Report 12466456 (Version 1)
Quarter: 2016Q2

REPORT INFORMATION
  Report Type: Report from Study
  Country: MX (occurrence: MX)
  Receive Date: 20160615
  Receipt Date: 20160615
  Transmission Date: 20160815
  Serious: Yes (Other)
  Sender: FDA-Public Use
  Company Number: MX-UCBSA-2016022047

PATIENT
  Sex: Female
  Weight: 60 kg

DRUGS (6)
  1. ROTIGOTINE [Suspect]
     Active Substance: ROTIGOTINE
     Dosage: 6 MG, ONCE DAILY (QD)
     Route: 062
  2. ROTIGOTINE [Suspect]
     Active Substance: ROTIGOTINE
     Indication: PARKINSON^S DISEASE
     Dosage: 2 MG, ONCE DAILY (QD)
     Route: 062
     Dates: start: 2012
  3. ROTIGOTINE [Suspect]
     Active Substance: ROTIGOTINE
     Dosage: 8 MG, ONCE DAILY (QD)
     Route: 062
  4. LEVODOPA W/BENSERAZIDE [Concomitant]
     Active Substance: BENSERAZIDE\LEVODOPA
     Indication: PARKINSON^S DISEASE
     Dosage: 100MG/25MG (? OF A TABLET/4 HRS), 6X/DAY
     Dates: start: 2009
  5. PROPAFENONE. [Concomitant]
     Active Substance: PROPAFENONE
     Indication: TACHYCARDIA
     Dosage: 150 MG, 2X/2 DAYS (150MG/12 HRS)
     Dates: start: 2015
  6. HIDROSMIN [Concomitant]
     Active Substance: HIDROSMIN
     Indication: CARDIOVASCULAR DISORDER
     Dosage: 1 DF, 2X/DAY (BID) (1 TABLET/ 12 HRS)
     Dates: start: 2014

REACTIONS (2)
  - Nightmare [Unknown]
  - Surgery [Unknown]

NARRATIVE: CASE EVENT DATE: 2015
